FAERS Safety Report 21522880 (Version 2)
Quarter: 2023Q1

REPORT INFORMATION
  Report Type: Report from Study
  Country: US (occurrence: US)
  Receive Date: 20221029
  Receipt Date: 20230202
  Transmission Date: 20230418
  Serious: No
  Sender: FDA-Public Use
  Company Number: US-ABBVIE-4179626

PATIENT
  Age: 64 Year
  Sex: Male

DRUGS (1)
  1. IMBRUVICA [Suspect]
     Active Substance: IBRUTINIB
     Indication: Chronic lymphocytic leukaemia
     Route: 048
     Dates: start: 20190204

REACTIONS (18)
  - Skin haemorrhage [Recovering/Resolving]
  - Fatigue [Unknown]
  - Erythema [Recovering/Resolving]
  - Tendonitis [Unknown]
  - Thyroid disorder [Unknown]
  - Blood thyroid stimulating hormone increased [Unknown]
  - Pain in extremity [Unknown]
  - Erythema [Unknown]
  - Thrombosis [Unknown]
  - Platelet count decreased [Unknown]
  - Blood uric acid increased [Unknown]
  - Arthralgia [Unknown]
  - White blood cell count increased [Unknown]
  - Venous injury [Unknown]
  - Skin fissures [Unknown]
  - Nodule [Unknown]
  - Swelling [Unknown]
  - Peripheral swelling [Unknown]

NARRATIVE: CASE EVENT DATE: 20191201
